FAERS Safety Report 12712757 (Version 3)
Quarter: 2016Q4

REPORT INFORMATION
  Report Type: Spontaneous
  Country: JP (occurrence: JP)
  Receive Date: 20160902
  Receipt Date: 20161020
  Transmission Date: 20170207
  Serious: Yes (Hospitalization, Other)
  Sender: FDA-Public Use
  Company Number: JP-GILEAD-2016-0231011

PATIENT
  Age: 65 Year
  Sex: Male
  Weight: 70 kg

DRUGS (5)
  1. ZOLPIDEM [Concomitant]
     Active Substance: ZOLPIDEM\ZOLPIDEM TARTRATE
     Dosage: 10 MG, UNK
     Route: 048
  2. HARVONI [Suspect]
     Active Substance: LEDIPASVIR\SOFOSBUVIR
     Indication: PRODUCT USED FOR UNKNOWN INDICATION
     Dosage: UNK
     Route: 048
  3. AZELNIDIPINE [Concomitant]
     Active Substance: AZELNIDIPINE
     Dosage: 16 MG, UNK
     Route: 048
  4. TAMSULOSIN [Concomitant]
     Active Substance: TAMSULOSIN
     Dosage: 0.2 MG, UNK
     Route: 048
  5. MUCOSOLVAN [Concomitant]
     Active Substance: AMBROXOL HYDROCHLORIDE
     Dosage: 45 MG, UNK
     Route: 048

REACTIONS (3)
  - Impaired healing [Unknown]
  - Arthropod bite [Recovering/Resolving]
  - Anaphylactic shock [Unknown]

NARRATIVE: CASE EVENT DATE: 20160829
